FAERS Safety Report 5869139-8 (Version None)
Quarter: 2008Q3

REPORT INFORMATION
  Report Type: 
  Country: None (occurrence: None)
  Receive Date: 20080903
  Receipt Date: 20080828
  Transmission Date: 20090109
  Serious: Yes (Hospitalization)
  Sender: FDA-Public Use
  Company Number: US-ASTRAZENECA-2008UW17782

PATIENT
  Age: 40 Year
  Sex: Female

DRUGS (4)
  1. SYMBICORT [Suspect]
     Indication: COUGH
     Dosage: 80/4.5 MCG
     Route: 055
  2. SYMBICORT [Suspect]
     Dosage: 160/4.5 MCG
     Route: 055
  3. ATACAND [Suspect]
     Route: 048
  4. PREDNISONE TAB [Suspect]
     Route: 065

REACTIONS (2)
  - PSYCHIATRIC SYMPTOM [None]
  - TREMOR [None]
